FAERS Safety Report 12450113 (Version 1)
Quarter: 2016Q2

REPORT INFORMATION
  Report Type: Spontaneous
  Country: FR (occurrence: FR)
  Receive Date: 20160609
  Receipt Date: 20160609
  Transmission Date: 20160815
  Serious: Yes (Hospitalization)
  Sender: FDA-Public Use
  Company Number: FR-ACCORD-041460

PATIENT
  Age: 54 Year
  Sex: Male

DRUGS (8)
  1. OXYCONTIN [Concomitant]
     Active Substance: OXYCODONE HYDROCHLORIDE
     Dosage: 2 INTAKES, ONE IN THE MORNING AND ONE IN THE EVENING
     Route: 048
  2. INNOHEP [Concomitant]
     Active Substance: TINZAPARIN SODIUM
     Dosage: 0.9 DAILY VIA ORAL ROUTE
     Route: 048
  3. IRINOTECAN MYLAN [Suspect]
     Active Substance: IRINOTECAN
     Indication: PANCREATIC CARCINOMA METASTATIC
     Dosage: STRENGTH: 20 MG/ML, ONCE, SINGLE INTAKE ON DAY 1
     Route: 042
     Dates: start: 20160429
  4. OXALIPLATIN ACCORD [Suspect]
     Active Substance: OXALIPLATIN
     Indication: PANCREATIC CARCINOMA METASTATIC
     Dosage: STRENGTH: 5 MG/ML, ONCE, SINGLE INTAKE
     Route: 042
     Dates: start: 20160429
  5. CALCIUM LEVOFOLINATE [Concomitant]
     Active Substance: LEVOLEUCOVORIN CALCIUM
     Indication: PANCREATIC CARCINOMA METASTATIC
     Dosage: ON DAY 1
  6. OXYNORM [Concomitant]
     Active Substance: OXYCODONE HYDROCHLORIDE
     Dosage: 120 MG, 30 MG, INTERDOSE: 4 OR 6 TIMES A DAY
  7. FLUOROURACIL ACCORD [Suspect]
     Active Substance: FLUOROURACIL
     Indication: PANCREATIC CARCINOMA METASTATIC
     Dosage: STRENGTH: 50 MG/ML, ?CYCLE 1 ON 15-APR-2016 AND 16-APR-2016 (5600 MG).?PATIENT RECEIVED FOLFIRINOX
     Route: 042
     Dates: start: 20160429
  8. GRANOCYTE [Concomitant]
     Active Substance: LENOGRASTIM
     Route: 058
     Dates: start: 20160429, end: 20160503

REACTIONS (2)
  - Sepsis [Recovered/Resolved]
  - Febrile neutropenia [Recovered/Resolved]

NARRATIVE: CASE EVENT DATE: 20160508
